FAERS Safety Report 6773243-X (Version None)
Quarter: 2010Q2

REPORT INFORMATION
  Report Type: 
  Country: None (occurrence: None)
  Receive Date: 20100616
  Receipt Date: 20100318
  Transmission Date: 20101027
  Serious: No
  Sender: FDA-Public Use
  Company Number: US-ABBOTT-10P-163-0630150-00

PATIENT
  Sex: Female
  Weight: 74.91 kg

DRUGS (6)
  1. TRILIPIX [Suspect]
     Indication: DYSLIPIDAEMIA
     Route: 048
     Dates: start: 20091111
  2. TRILIPIX [Suspect]
     Route: 048
  3. TRICOR [Concomitant]
     Indication: DYSLIPIDAEMIA
     Dosage: UNKNOWN STRENGTH
     Route: 048
     Dates: end: 20091111
  4. TRICOR [Concomitant]
  5. NIASPAN [Concomitant]
     Indication: DYSLIPIDAEMIA
     Route: 048
  6. NIASPAN [Concomitant]
     Dosage: QD
     Route: 048

REACTIONS (2)
  - DRUG ADMINISTRATION ERROR [None]
  - VERTIGO [None]
